FAERS Safety Report 10065570 (Version 2)
Quarter: 2015Q2

REPORT INFORMATION
  Report Type: Spontaneous
  Country: EG (occurrence: EG)
  Receive Date: 20140408
  Receipt Date: 20150507
  Transmission Date: 20150821
  Serious: Yes (Life-Threatening)
  Sender: FDA-Public Use
  Company Number: EG-BAYER-2014-051778

PATIENT
  Age: 40 Year
  Sex: Female
  Weight: 80 kg

DRUGS (2)
  1. ULTRAVIST [Suspect]
     Active Substance: IOPROMIDE
     Indication: COMPUTERISED TOMOGRAM ABDOMEN
     Dosage: 100 MG, ONCE
     Route: 042
  2. UROGRAFIN [Suspect]
     Active Substance: DIATRIZOATE MEGLUMINE\DIATRIZOATE SODIUM
     Dosage: 2 AMPOULES
     Route: 048

REACTIONS (4)
  - Foaming at mouth [Recovered/Resolved]
  - Product use issue [None]
  - Pulse absent [Recovered/Resolved]
  - Hypotension [Recovered/Resolved]

NARRATIVE: CASE EVENT DATE: 20140311
